FAERS Safety Report 5796518-X (Version None)
Quarter: 2008Q3

REPORT INFORMATION
  Report Type: 
  Country: None (occurrence: None)
  Receive Date: 20080701
  Receipt Date: 20080627
  Transmission Date: 20090109
  Serious: Yes (Hospitalization)
  Sender: FDA-Public Use
  Company Number: B0527034A

PATIENT
  Age: 76 Year
  Sex: Male

DRUGS (10)
  1. CARVEDILOL [Suspect]
     Indication: DRUG USE FOR UNKNOWN INDICATION
     Dosage: 6.25MG AS DIRECTED
     Route: 048
  2. ALDACTONE [Suspect]
     Indication: DRUG USE FOR UNKNOWN INDICATION
     Dosage: 50MG PER DAY
     Route: 048
  3. TOREM [Suspect]
     Indication: DRUG USE FOR UNKNOWN INDICATION
     Dosage: 200MG PER DAY
     Route: 048
     Dates: start: 20080121
  4. ATACAND [Suspect]
     Indication: DRUG USE FOR UNKNOWN INDICATION
     Dosage: 8MG PER DAY
     Route: 048
     Dates: end: 20080312
  5. NITRODERM [Suspect]
     Indication: DRUG USE FOR UNKNOWN INDICATION
     Dosage: 50MG PER DAY
     Route: 062
     Dates: end: 20080312
  6. CORDARONE [Concomitant]
     Dosage: 8MG PER DAY
  7. ASPIRIN [Concomitant]
  8. SINTROM [Concomitant]
  9. ZOCOR [Concomitant]
  10. INSULIN [Concomitant]

REACTIONS (4)
  - HYPOTENSION [None]
  - HYPOVOLAEMIA [None]
  - RESPIRATION ABNORMAL [None]
  - SYNCOPE [None]
